FAERS Safety Report 4608906-5 (Version None)
Quarter: 2005Q1

REPORT INFORMATION
  Report Type: 
  Country: None (occurrence: None)
  Receive Date: 20050309
  Receipt Date: 20050225
  Transmission Date: 20050727
  Serious: Yes (Other)
  Sender: FDA-Public Use
  Company Number: 2005039055

PATIENT
  Sex: Female

DRUGS (1)
  1. ZELDOX (CAPSULES)  (ZIPRASIDONE) [Suspect]
     Indication: ILL-DEFINED DISORDER

REACTIONS (1)
  - EPILEPSY [None]
